FAERS Safety Report 15361301 (Version 1)
Quarter: 2018Q3

REPORT INFORMATION
  Report Type: Spontaneous
  Country: CZ (occurrence: CZ)
  Receive Date: 20180907
  Receipt Date: 20180907
  Transmission Date: 20181010
  Serious: Yes (Other)
  Sender: FDA-Public Use
  Company Number: CZ-ALK-ABELLO A/S-2018AA002830

PATIENT

DRUGS (2)
  1. XYZAL [Concomitant]
     Active Substance: LEVOCETIRIZINE DIHYDROCHLORIDE
     Indication: ANTIALLERGIC THERAPY
  2. ACARIZAX 12 SQ?HDM [Suspect]
     Active Substance: DERMATOPHAGOIDES FARINAE\DERMATOPHAGOIDES PTERONYSSINUS
     Indication: ASTHMA
     Dosage: 12 SQ?HDM
     Route: 060
     Dates: start: 20180807, end: 20180820

REACTIONS (8)
  - Dysphonia [Recovered/Resolved]
  - Pruritus [Recovered/Resolved]
  - Oedema mouth [Recovered/Resolved]
  - Erythema [Recovering/Resolving]
  - Paraesthesia oral [Recovered/Resolved]
  - Pharyngeal oedema [Recovered/Resolved]
  - Tongue oedema [Recovered/Resolved]
  - Lip swelling [Recovered/Resolved]

NARRATIVE: CASE EVENT DATE: 20180812
